FAERS Safety Report 17257191 (Version 2)
Quarter: 2020Q1

REPORT INFORMATION
  Report Type: Spontaneous
  Country: KR (occurrence: KR)
  Receive Date: 20200110
  Receipt Date: 20200121
  Transmission Date: 20200409
  Serious: Yes (Death)
  Sender: FDA-Public Use
  Company Number: NVSC2020KR003701

PATIENT
  Age: 18 Day
  Sex: Male

DRUGS (5)
  1. LASIX [Concomitant]
     Active Substance: FUROSEMIDE
     Indication: PRODUCT USED FOR UNKNOWN INDICATION
     Dosage: 2.5 MG
     Route: 065
  2. EVEROLIMUS. [Suspect]
     Active Substance: EVEROLIMUS
     Dosage: 0.1 MG, BID
     Route: 048
     Dates: end: 20160228
  3. EGLANDIN [Concomitant]
     Indication: PRODUCT USED FOR UNKNOWN INDICATION
     Dosage: 0.003 UNK, MCG/KG/MIN, CONTINOUS
     Route: 065
  4. EVEROLIMUS. [Suspect]
     Active Substance: EVEROLIMUS
     Indication: RHABDOMYOMA
     Dosage: 0.25 MG, BID AS LOADING DOSE
     Route: 048
     Dates: start: 20160225
  5. SEPTRIN [Concomitant]
     Active Substance: SULFAMETHOXAZOLE\TRIMETHOPRIM
     Indication: PRODUCT USED FOR UNKNOWN INDICATION
     Dosage: 0.25 DF, BID
     Route: 065

REACTIONS (4)
  - Malignant neoplasm progression [Fatal]
  - Rhabdomyoma [Fatal]
  - Product use in unapproved indication [Unknown]
  - Right ventricle outflow tract obstruction [Fatal]

NARRATIVE: CASE EVENT DATE: 20160226
